FAERS Safety Report 7041997-3 (Version None)
Quarter: 2010Q4

REPORT INFORMATION
  Report Type: 
  Country: None (occurrence: None)
  Receive Date: 20101013
  Receipt Date: 20091019
  Transmission Date: 20110411
  Serious: No
  Sender: FDA-Public Use
  Company Number: US-ASTRAZENECA-2009SE20994

PATIENT
  Age: 28968 Day
  Sex: Female
  Weight: 108.9 kg

DRUGS (11)
  1. SYMBICORT [Suspect]
     Dosage: 160/4.5 BID
     Route: 055
     Dates: start: 20091012
  2. LEVOTHYROXINE [Concomitant]
  3. ALPRAZOLAM [Concomitant]
  4. SIMVASTATIN [Concomitant]
  5. SINGULAIR [Concomitant]
  6. RANITIDINE [Concomitant]
  7. AVALIDE [Concomitant]
  8. HYDROLYZINE [Concomitant]
  9. FUROSEMIDE [Concomitant]
  10. ACTOS [Concomitant]
  11. SPIRIVA [Concomitant]

REACTIONS (2)
  - BLOOD GLUCOSE INCREASED [None]
  - MEDICATION ERROR [None]
